FAERS Safety Report 11155245 (Version 2)
Quarter: 2015Q2

REPORT INFORMATION
  Report Type: Spontaneous
  Country: US (occurrence: None)
  Receive Date: 20150601
  Receipt Date: 20150616
  Transmission Date: 20150821
  Serious: No
  Sender: FDA-Public Use
  Company Number: US-2015CRT000135

PATIENT
  Age: 52 Year
  Sex: Female
  Weight: 101.1 kg

DRUGS (3)
  1. KORLYM [Suspect]
     Active Substance: MIFEPRISTONE
     Indication: CUSHING^S SYNDROME
     Route: 048
     Dates: start: 201307, end: 201308
  2. SPIRONOLACTONE (SPIRONOLACTONE) [Concomitant]
     Active Substance: SPIRONOLACTONE
  3. LISINOPRIL (LISINOPRIL) [Concomitant]
     Active Substance: LISINOPRIL

REACTIONS (9)
  - Vaginal haemorrhage [None]
  - Blood cortisol increased [None]
  - Vaginal discharge [None]
  - Blood corticotrophin increased [None]
  - Uterine polyp [None]
  - Cervical polyp [None]
  - Glycosylated haemoglobin increased [None]
  - Nausea [None]
  - Weight decreased [None]

NARRATIVE: CASE EVENT DATE: 2014
